FAERS Safety Report 18841304 (Version 2)
Quarter: 2021Q1

REPORT INFORMATION
  Report Type: Spontaneous
  Country: CN (occurrence: CN)
  Receive Date: 20210203
  Receipt Date: 20210324
  Transmission Date: 20210419
  Serious: Yes (Other)
  Sender: FDA-Public Use
  Company Number: CN-BAYER-2021-050604

PATIENT
  Age: 89 Year
  Sex: Male

DRUGS (1)
  1. AVELOX [Suspect]
     Active Substance: MOXIFLOXACIN HYDROCHLORIDE
     Indication: PNEUMONIA
     Dosage: 400 MG, QD
     Route: 048
     Dates: start: 20190509, end: 20190509

REACTIONS (4)
  - Confusional state [Recovered/Resolved]
  - Insomnia [Recovering/Resolving]
  - Dysphoria [Recovered/Resolved]
  - Lacunar infarction [None]

NARRATIVE: CASE EVENT DATE: 20190509
